FAERS Safety Report 8202217-7 (Version None)
Quarter: 2012Q1

REPORT INFORMATION
  Report Type: 
  Country: None (occurrence: None)
  Receive Date: 20120312
  Receipt Date: 20120306
  Transmission Date: 20120608
  Serious: Yes (Hospitalization, Other)
  Sender: FDA-Public Use
  Company Number: US-PFIZER INC-2011219896

PATIENT
  Sex: Female

DRUGS (2)
  1. DEPO-PROVERA [Concomitant]
     Indication: CONTRACEPTION
     Dosage: UNK
     Dates: end: 20110101
  2. CHANTIX [Suspect]
     Indication: SMOKING CESSATION THERAPY
     Dosage: 0.5MG AND 1MG
     Dates: start: 20080801, end: 20090201

REACTIONS (12)
  - LOSS OF CONSCIOUSNESS [None]
  - NIGHTMARE [None]
  - MOOD SWINGS [None]
  - PAIN [None]
  - MUSCLE SPASMS [None]
  - ULNAR NERVE INJURY [None]
  - BIPOLAR DISORDER [None]
  - MUSCULAR WEAKNESS [None]
  - SCAR [None]
  - NEURALGIA [None]
  - ROAD TRAFFIC ACCIDENT [None]
  - SKIN INJURY [None]
